FAERS Safety Report 9200908 (Version 1)
Quarter: 2013Q1

REPORT INFORMATION
  Report Type: Spontaneous
  Country: GB (occurrence: None)
  Receive Date: 20130327
  Receipt Date: 20130327
  Transmission Date: 20140127
  Serious: Yes (Other)
  Sender: FDA-Public Use
  Company Number: KAD201303-00424

PATIENT
  Age: 63 Year
  Sex: Male
  Weight: 103 kg

DRUGS (4)
  1. RIBAVIRIN [Suspect]
     Indication: HEPATITIS C
     Route: 048
     Dates: start: 20121107
  2. TELAPREVIR [Suspect]
     Indication: HEPATITIS C
     Route: 048
     Dates: start: 20121107, end: 20130129
  3. LISINOPRIL (LISINOPRIL) [Concomitant]
  4. PEGINTERFERON ALFA-2B (PEGINTERFERON ALFA-2B) [Concomitant]

REACTIONS (3)
  - Anaemia [None]
  - Blood creatinine increased [None]
  - Creatinine renal clearance decreased [None]
